FAERS Safety Report 11863351 (Version 2)
Quarter: 2016Q3

REPORT INFORMATION
  Report Type: Spontaneous
  Country: US (occurrence: US)
  Receive Date: 20151223
  Receipt Date: 20160803
  Transmission Date: 20161109
  Serious: No
  Sender: FDA-Public Use
  Company Number: US-BIOGEN-2015BI00162318

PATIENT
  Sex: Female

DRUGS (3)
  1. AVONEX [Suspect]
     Active Substance: INTERFERON BETA-1A
     Route: 065
     Dates: start: 20040319, end: 20130613
  2. AVONEX [Suspect]
     Active Substance: INTERFERON BETA-1A
     Route: 030
     Dates: end: 20130613
  3. AVONEX [Suspect]
     Active Substance: INTERFERON BETA-1A
     Indication: MULTIPLE SCLEROSIS
     Route: 030
     Dates: start: 20040319

REACTIONS (6)
  - Cognitive disorder [Recovered/Resolved]
  - Urticaria [Unknown]
  - Depression [Recovered/Resolved]
  - Blood cholesterol increased [Recovered/Resolved]
  - Anxiety [Unknown]
  - Cataract [Unknown]
